FAERS Safety Report 16447060 (Version 7)
Quarter: 2020Q4

REPORT INFORMATION
  Report Type: Report from Study
  Country: US (occurrence: US)
  Receive Date: 20190618
  Receipt Date: 20201112
  Transmission Date: 20210113
  Serious: Yes (Hospitalization, Other)
  Sender: FDA-Public Use
  Company Number: US-SHIRE-US201918578

PATIENT
  Age: 68 Year
  Sex: Female

DRUGS (16)
  1. TEDUGLUTIDE [Suspect]
     Active Substance: TEDUGLUTIDE
     Indication: SHORT-BOWEL SYNDROME
     Dosage: 3.67 MILLIGRAM, QD
     Route: 058
     Dates: start: 20160115
  2. TEDUGLUTIDE [Suspect]
     Active Substance: TEDUGLUTIDE
     Dosage: 0.2630 (UNKNOWN UNIT) 1X/DAY:QD
     Route: 058
     Dates: start: 20160115
  3. TEDUGLUTIDE [Suspect]
     Active Substance: TEDUGLUTIDE
     Dosage: 0.2630 (UNKNOWN UNIT) 1X/DAY:QD
     Route: 058
     Dates: start: 20160115
  4. TEDUGLUTIDE [Suspect]
     Active Substance: TEDUGLUTIDE
     Dosage: 0.2630 (UNKNOWN UNIT) 1X/DAY:QD
     Route: 058
     Dates: start: 20160115
  5. TEDUGLUTIDE [Suspect]
     Active Substance: TEDUGLUTIDE
     Dosage: 1.6 MILLIGRAM, 1X/DAY:QD
     Route: 058
     Dates: start: 201906
  6. TEDUGLUTIDE [Suspect]
     Active Substance: TEDUGLUTIDE
     Indication: SHORT-BOWEL SYNDROME
     Dosage: 3.67 MILLIGRAM, QD
     Route: 058
     Dates: start: 20160115
  7. TEDUGLUTIDE [Suspect]
     Active Substance: TEDUGLUTIDE
     Dosage: 1.6 MILLIGRAM, 1X/DAY:QD
     Route: 058
     Dates: start: 20190627
  8. TEDUGLUTIDE [Suspect]
     Active Substance: TEDUGLUTIDE
     Dosage: 1.6 MILLIGRAM, 1X/DAY:QD
     Route: 058
     Dates: start: 20190627
  9. TEDUGLUTIDE [Suspect]
     Active Substance: TEDUGLUTIDE
     Dosage: 1.6 MILLIGRAM, 1X/DAY:QD
     Route: 058
     Dates: start: 20190627
  10. TEDUGLUTIDE [Suspect]
     Active Substance: TEDUGLUTIDE
     Dosage: 1.6 MILLIGRAM, 1X/DAY:QD
     Route: 058
     Dates: start: 201906
  11. TEDUGLUTIDE [Suspect]
     Active Substance: TEDUGLUTIDE
     Indication: SHORT-BOWEL SYNDROME
     Dosage: 3.67 MILLIGRAM, QD
     Route: 058
     Dates: start: 20160115
  12. TEDUGLUTIDE [Suspect]
     Active Substance: TEDUGLUTIDE
     Indication: SHORT-BOWEL SYNDROME
     Dosage: 3.67 MILLIGRAM, QD
     Route: 058
     Dates: start: 20160115
  13. TEDUGLUTIDE [Suspect]
     Active Substance: TEDUGLUTIDE
     Dosage: 1.6 MILLIGRAM, 1X/DAY:QD
     Route: 058
     Dates: start: 201906
  14. TEDUGLUTIDE [Suspect]
     Active Substance: TEDUGLUTIDE
     Dosage: 0.2630 (UNKNOWN UNIT) 1X/DAY:QD
     Route: 058
     Dates: start: 20160115
  15. TEDUGLUTIDE [Suspect]
     Active Substance: TEDUGLUTIDE
     Dosage: 1.6 MILLIGRAM, 1X/DAY:QD
     Route: 058
     Dates: start: 201906
  16. TEDUGLUTIDE [Suspect]
     Active Substance: TEDUGLUTIDE
     Dosage: 1.6 MILLIGRAM, 1X/DAY:QD
     Route: 058
     Dates: start: 20190627

REACTIONS (22)
  - Fall [Not Recovered/Not Resolved]
  - Joint injury [Unknown]
  - Weight decreased [Recovering/Resolving]
  - Frequent bowel movements [Not Recovered/Not Resolved]
  - Nausea [Not Recovered/Not Resolved]
  - Flatulence [Recovered/Resolved]
  - Fatigue [Unknown]
  - Vomiting [Recovered/Resolved]
  - Product dose omission issue [Unknown]
  - Gastrointestinal pain [Unknown]
  - Abdominal pain upper [Not Recovered/Not Resolved]
  - Obstruction [Recovered/Resolved]
  - Urinary tract infection [Unknown]
  - Ligament sprain [Not Recovered/Not Resolved]
  - Vesical fistula [Not Recovered/Not Resolved]
  - Tremor [Recovered/Resolved]
  - Anxiety [Not Recovered/Not Resolved]
  - Limb injury [Unknown]
  - Inappropriate schedule of product administration [Unknown]
  - Intestinal obstruction [Unknown]
  - Faecaloma [Unknown]
  - Malaise [Unknown]

NARRATIVE: CASE EVENT DATE: 20160115
